FAERS Safety Report 5613092-9 (Version None)
Quarter: 2008Q1

REPORT INFORMATION
  Report Type: 
  Country: None (occurrence: None)
  Receive Date: 20080204
  Receipt Date: 20080124
  Transmission Date: 20080703
  Serious: Yes (Hospitalization)
  Sender: FDA-Public Use
  Company Number: FR-PFIZER INC-2008007943

PATIENT
  Sex: Female

DRUGS (6)
  1. LYRICA [Suspect]
     Route: 048
  2. ACECLOFENAC [Suspect]
     Route: 048
  3. EFFEXOR [Concomitant]
  4. INIPOMP [Concomitant]
  5. TRAMADOL HCL [Concomitant]
  6. FORLAX [Concomitant]

REACTIONS (1)
  - INTERSTITIAL LUNG DISEASE [None]
